FAERS Safety Report 10028608 (Version 1)
Quarter: 2014Q1

REPORT INFORMATION
  Report Type: Spontaneous
  Country: US (occurrence: US)
  Receive Date: 20140321
  Receipt Date: 20140321
  Transmission Date: 20141002
  Serious: Yes (Hospitalization)
  Sender: FDA-Public Use
  Company Number: US-GLAXOSMITHKLINE-A1065612A

PATIENT
  Age: 70 Year
  Sex: Male

DRUGS (9)
  1. ADVAIR [Suspect]
     Indication: CHRONIC OBSTRUCTIVE PULMONARY DISEASE
     Dosage: 1PUFF TWICE PER DAY
     Route: 055
     Dates: start: 200403
  2. SPIRIVA [Concomitant]
  3. CENTRUM SILVER [Concomitant]
  4. VITAMIN D [Concomitant]
  5. NEXIUM [Concomitant]
  6. FISH OIL [Concomitant]
  7. ASPIRIN [Concomitant]
  8. VENTOLIN INHALER [Concomitant]
  9. ALBUTEROL SULFATE NEBULIZER [Concomitant]

REACTIONS (2)
  - Lung lobectomy [Recovered/Resolved]
  - Pneumonia [Recovered/Resolved]
